FAERS Safety Report 21334107 (Version 1)
Quarter: 2022Q3

REPORT INFORMATION
  Report Type: Spontaneous
  Country: US (occurrence: None)
  Receive Date: 20220913
  Receipt Date: 20220913
  Transmission Date: 20221026
  Serious: No
  Sender: FDA-Public Use
  Company Number: None

PATIENT
  Age: 69 Year
  Sex: Female
  Weight: 55.34 kg

DRUGS (11)
  1. KISQALI [Suspect]
     Active Substance: RIBOCICLIB
     Indication: Breast cancer female
     Dosage: FREQUENCY : DAILY;?
     Route: 048
  2. LETROZOLE [Suspect]
     Active Substance: LETROZOLE
  3. ALLERGY [Concomitant]
  4. ALOE VERA GEL [Concomitant]
  5. CRANBERRY [Concomitant]
  6. CURCUMIN [Concomitant]
  7. TUMERIC [Concomitant]
  8. DAILY PROBIOTIC [Concomitant]
  9. MULTIVITAMINS [Concomitant]
  10. NSAID [Concomitant]
  11. VITAMIN C [Concomitant]

REACTIONS (1)
  - White blood cell count decreased [None]
